FAERS Safety Report 8611901-2 (Version None)
Quarter: 2012Q3

REPORT INFORMATION
  Report Type: 
  Country: None (occurrence: None)
  Receive Date: 20120822
  Receipt Date: 20120814
  Transmission Date: 20120928
  Serious: Yes (Hospitalization, Other)
  Sender: FDA-Public Use
  Company Number: PHHO2012NL011923

PATIENT
  Sex: Male
  Weight: 82.8 kg

DRUGS (5)
  1. ENALAPRIL MALEATE [Suspect]
     Indication: CARDIAC FAILURE
     Dosage: UNK
     Route: 048
     Dates: start: 20091110, end: 20120711
  2. SPIRONOLACTONE [Concomitant]
     Indication: CARDIAC FAILURE
     Dosage: 12.5 MG, SAILY
     Route: 048
     Dates: end: 20120724
  3. BUMETANIDE [Concomitant]
     Indication: CARDIAC FAILURE
     Dosage: 3 MG, TID
     Route: 048
  4. METOPROLOL TARTRATE [Concomitant]
     Indication: CARDIAC FAILURE
     Dosage: 50 MG, DAILY
     Route: 048
     Dates: end: 20120724
  5. BUMETANIDE [Suspect]

REACTIONS (2)
  - CARDIAC FAILURE [None]
  - RENAL DISORDER [None]
